FAERS Safety Report 16983517 (Version 1)
Quarter: 2019Q4

REPORT INFORMATION
  Report Type: Spontaneous
  Country: US (occurrence: US)
  Receive Date: 20190917
  Receipt Date: 20190917
  Transmission Date: 20200122
  Serious: Yes (Disabling)
  Sender: FDA-Public Use
  Company Number: None

PATIENT
  Age: 71 Year
  Sex: Female
  Weight: 83.91 kg

DRUGS (9)
  1. TUMERIC [Concomitant]
     Active Substance: HERBALS\TURMERIC
  2. VITAMIN D3 [Concomitant]
     Active Substance: CHOLECALCIFEROL
  3. COENZYME Q10 [Concomitant]
     Active Substance: UBIDECARENONE
  4. LISINIPRIL [Suspect]
     Active Substance: LISINOPRIL
  5. LEVOFLOXACIN 500MG [Suspect]
     Active Substance: LEVOFLOXACIN
     Indication: BRONCHITIS
     Dosage: ?          QUANTITY:1 DF DOSAGE FORM;?
     Route: 048
     Dates: start: 20190702, end: 20190709
  6. 1 PER DAY VITAMINS [Concomitant]
  7. PEPCIC AC [Concomitant]
  8. KRILL OIL OMEGA 3 [Concomitant]
  9. ALPHA LIPOIC ACID [Concomitant]
     Active Substance: .ALPHA.-LIPOIC ACID

REACTIONS (12)
  - Atrial fibrillation [None]
  - Musculoskeletal pain [None]
  - Eye pain [None]
  - Muscle fatigue [None]
  - Back pain [None]
  - Balance disorder [None]
  - Muscle injury [None]
  - Arthralgia [None]
  - Muscle rupture [None]
  - Tendon pain [None]
  - Dizziness [None]
  - Neuropathy peripheral [None]

NARRATIVE: CASE EVENT DATE: 20190709
